FAERS Safety Report 6669847-5 (Version None)
Quarter: 2010Q2

REPORT INFORMATION
  Report Type: 
  Country: None (occurrence: None)
  Receive Date: 20100406
  Receipt Date: 20100125
  Transmission Date: 20101027
  Serious: No
  Sender: FDA-Public Use
  Company Number: US-ALLERGAN-0911125US

PATIENT
  Age: 50 Year
  Sex: Female

DRUGS (3)
  1. LATISSE [Suspect]
     Indication: DRUG USE FOR UNKNOWN INDICATION
     Dosage: UNK
     Route: 061
     Dates: start: 20090221
  2. ALEVE (CAPLET) [Concomitant]
  3. FEMHRT [Concomitant]
     Dosage: UNK

REACTIONS (1)
  - MADAROSIS [None]
